FAERS Safety Report 19087405 (Version 1)
Quarter: 2021Q2

REPORT INFORMATION
  Report Type: Spontaneous
  Country: US (occurrence: US)
  Receive Date: 20210402
  Receipt Date: 20210402
  Transmission Date: 20210717
  Serious: No
  Sender: FDA-Public Use
  Company Number: US-TAKEDA-2021TUS018413

PATIENT
  Sex: Female
  Weight: 99.77 kg

DRUGS (2)
  1. HYQVIA [Suspect]
     Active Substance: HUMAN IMMUNOGLOBULIN G\HYALURONIDASE RECOMBINANT HUMAN
     Indication: IMMUNODEFICIENCY COMMON VARIABLE
  2. HYQVIA [Suspect]
     Active Substance: HUMAN IMMUNOGLOBULIN G\HYALURONIDASE RECOMBINANT HUMAN
     Indication: PREMATURE BABY
     Dosage: 30 GRAM, Q4WEEKS
     Route: 058
     Dates: start: 20181221

REACTIONS (3)
  - Infusion site swelling [Unknown]
  - Anger [Unknown]
  - Infusion site erythema [Unknown]
